FAERS Safety Report 9193738 (Version 4)
Quarter: 2013Q3

REPORT INFORMATION
  Report Type: Report from Study
  Country: DE (occurrence: DE)
  Receive Date: 20130327
  Receipt Date: 20130726
  Transmission Date: 20140515
  Serious: Yes (Hospitalization)
  Sender: FDA-Public Use
  Company Number: DE-TEVA-382472GER

PATIENT
  Sex: Female

DRUGS (24)
  1. DOXORUBICIN [Suspect]
     Indication: B-CELL LYMPHOMA
     Route: 042
     Dates: start: 20130104, end: 20130104
  2. DOXORUBICIN [Suspect]
     Route: 042
     Dates: start: 20130124, end: 20130124
  3. DOXORUBICIN [Suspect]
     Route: 042
     Dates: start: 20130212, end: 20130312
  4. PREDNISONE [Suspect]
     Indication: B-CELL LYMPHOMA
     Route: 065
     Dates: start: 20130104, end: 20130104
  5. PREDNISONE [Suspect]
     Route: 065
     Dates: start: 20130124, end: 20130124
  6. PREDNISONE [Suspect]
     Route: 065
     Dates: start: 20130212, end: 20130312
  7. VINCRISTINE [Suspect]
     Indication: B-CELL LYMPHOMA
     Route: 042
     Dates: start: 20130109, end: 20130109
  8. VINCRISTINE [Suspect]
     Route: 042
     Dates: start: 20130124, end: 20130124
  9. VINCRISTINE [Suspect]
     Route: 042
     Dates: start: 20130212, end: 20130312
  10. RITUXIMAB [Suspect]
     Indication: B-CELL LYMPHOMA
     Route: 042
     Dates: start: 20130103, end: 20130103
  11. RITUXIMAB [Suspect]
     Route: 042
     Dates: start: 20130121, end: 20130121
  12. RITUXIMAB [Suspect]
     Route: 042
     Dates: start: 20130306, end: 20130306
  13. CYCLOPHOSPHAMID [Suspect]
     Indication: B-CELL LYMPHOMA
     Route: 042
     Dates: start: 20130104, end: 20130104
  14. CYCLOPHOSPHAMID [Suspect]
     Route: 042
     Dates: start: 20130121, end: 20130124
  15. CYCLOPHOSPHAMID [Suspect]
     Route: 042
     Dates: start: 20130212, end: 20130312
  16. PEGFILGRASTIM [Suspect]
     Indication: B-CELL LYMPHOMA
     Route: 058
     Dates: start: 20130107, end: 20130107
  17. PEGFILGRASTIM [Suspect]
     Route: 058
     Dates: start: 20130127, end: 20130127
  18. PEGFILGRASTIM [Suspect]
     Route: 058
     Dates: start: 20130216, end: 20130216
  19. PANTOPRAZOL [Concomitant]
     Indication: DYSPEPSIA
     Dosage: 40 MILLIGRAM DAILY;
     Route: 048
  20. METAMIZOL [Concomitant]
     Indication: PAIN
     Dosage: 2500 MILLIGRAM DAILY;
     Route: 048
  21. METOCLOPRAMIDE [Concomitant]
     Indication: NAUSEA
     Dosage: 30 MILLIGRAM DAILY;
     Route: 048
  22. ONDANSETRON [Concomitant]
     Indication: NAUSEA
     Dosage: 16 MILLIGRAM DAILY;
     Route: 048
  23. LACTULOSE [Concomitant]
     Indication: CONSTIPATION
     Dosage: 20 ML DAILY;
     Route: 048
  24. OXYCODON [Concomitant]
     Indication: PAIN
     Dosage: 20 MILLIGRAM DAILY;
     Dates: start: 20130502

REACTIONS (6)
  - Toxic neuropathy [Not Recovered/Not Resolved]
  - Anaemia [Recovered/Resolved]
  - Thrombocytopenia [Recovering/Resolving]
  - Pancreatitis [Not Recovered/Not Resolved]
  - Vomiting [Not Recovered/Not Resolved]
  - Anaemia [Recovering/Resolving]
